FAERS Safety Report 12249631 (Version 2)
Quarter: 2017Q1

REPORT INFORMATION
  Report Type: Spontaneous
  Country: CA (occurrence: CA)
  Receive Date: 20160408
  Receipt Date: 20170102
  Transmission Date: 20170428
  Serious: Yes (Other)
  Sender: FDA-Public Use
  Company Number: CA-TEVA-650349USA

PATIENT
  Age: 71 Year
  Sex: Female

DRUGS (2)
  1. TEVA-AMOXICILLIN [Suspect]
     Active Substance: AMOXICILLIN
     Indication: PRODUCT USED FOR UNKNOWN INDICATION
     Dosage: 1500 MILLIGRAM DAILY; SHE TOOK IT FOR 7 DAYS
     Dates: start: 20160314, end: 20160320
  2. METHOTREXATE. [Concomitant]
     Active Substance: METHOTREXATE

REACTIONS (5)
  - Headache [Unknown]
  - Fatigue [Unknown]
  - Sinusitis [Unknown]
  - Myalgia [Unknown]
  - Nausea [Recovered/Resolved]

NARRATIVE: CASE EVENT DATE: 20160315
